FAERS Safety Report 24752023 (Version 2)
Quarter: 2025Q1

REPORT INFORMATION
  Report Type: Report from Study
  Country: AU (occurrence: AU)
  Receive Date: 20241219
  Receipt Date: 20250328
  Transmission Date: 20250409
  Serious: Yes (Other)
  Sender: TAKEDA
  Company Number: AU-TAKEDA-2024TUS048959

PATIENT
  Sex: Female

DRUGS (14)
  1. TEDUGLUTIDE [Suspect]
     Active Substance: TEDUGLUTIDE
     Indication: Short-bowel syndrome
     Dosage: 3.6 MILLIGRAM, QD
     Dates: start: 20181109
  2. TEDUGLUTIDE [Suspect]
     Active Substance: TEDUGLUTIDE
     Dosage: 4 MILLIGRAM, QD
     Dates: start: 20230228
  3. TEDUGLUTIDE [Suspect]
     Active Substance: TEDUGLUTIDE
     Dosage: 2 MILLIGRAM, QD
     Dates: start: 20241203
  4. TEDUGLUTIDE [Suspect]
     Active Substance: TEDUGLUTIDE
  5. PREGABALIN [Concomitant]
     Active Substance: PREGABALIN
     Indication: Pain
  6. MAGNESIUM OXIDE [Concomitant]
     Active Substance: MAGNESIUM OXIDE
     Indication: Supplementation therapy
     Dosage: UNK UNK, QD
     Dates: start: 20230530
  7. VITAMIN A [Concomitant]
     Active Substance: VITAMIN A
     Indication: Supplementation therapy
     Dosage: 10000 DOSAGE FORM, QD
     Dates: start: 20230530
  8. CIPROFLOXACIN [Concomitant]
     Active Substance: CIPROFLOXACIN
     Indication: Gastrointestinal microorganism overgrowth
     Dosage: 500 MILLIGRAM, BID
     Dates: start: 20221214, end: 20221228
  9. AMITRIPTYLINE [Concomitant]
     Active Substance: AMITRIPTYLINE
     Indication: Supplementation therapy
  10. CALCIUM [Concomitant]
     Active Substance: CALCIUM
     Dosage: 1200 MILLIGRAM, TID
     Dates: start: 20210406
  11. PANTOPRAZOLE [Concomitant]
     Active Substance: PANTOPRAZOLE
     Indication: Product use in unapproved indication
     Dosage: 40 MILLIGRAM, QD
     Dates: start: 20210406
  12. ZINC [Concomitant]
     Active Substance: ZINC
     Indication: Supplementation therapy
     Dosage: 50 MILLIGRAM, QD
     Dates: start: 20210406
  13. VITAMIN E [Concomitant]
     Active Substance: .ALPHA.-TOCOPHEROL
     Indication: Supplementation therapy
     Dosage: UNK UNK, BID
     Dates: start: 20210601
  14. Sodibic [Concomitant]
     Indication: Nutritional supplementation
     Dosage: 840 MILLIGRAM, QD
     Dates: start: 20210601

REACTIONS (1)
  - Rheumatoid arthritis [Not Recovered/Not Resolved]

NARRATIVE: CASE EVENT DATE: 20240101
